FAERS Safety Report 25101945 (Version 2)
Quarter: 2025Q2

REPORT INFORMATION
  Report Type: Spontaneous
  Country: FR (occurrence: FR)
  Receive Date: 20250320
  Receipt Date: 20250516
  Transmission Date: 20250717
  Serious: Yes (Other)
  Sender: MYLAN
  Company Number: FR-ZENTIVA-2025-ZT-029607

PATIENT
  Age: 72 Year
  Sex: Male

DRUGS (4)
  1. DEXAMETHASONE [Suspect]
     Active Substance: DEXAMETHASONE
     Indication: Immunoglobulin G4 related disease
  2. REVLIMID [Suspect]
     Active Substance: LENALIDOMIDE
     Indication: Immunoglobulin G4 related disease
  3. REVLIMID [Suspect]
     Active Substance: LENALIDOMIDE
  4. DARATUMUMAB [Suspect]
     Active Substance: DARATUMUMAB
     Indication: Immunoglobulin G4 related disease

REACTIONS (1)
  - Neutropenia [Recovered/Resolved]
